FAERS Safety Report 10928104 (Version 1)
Quarter: 2015Q1

REPORT INFORMATION
  Report Type: Spontaneous
  Country: US (occurrence: None)
  Receive Date: 20150317
  Receipt Date: 20150317
  Transmission Date: 20150721
  Serious: Yes (Other)
  Sender: FDA-Public Use
  Company Number: None

PATIENT
  Age: 49 Year

DRUGS (7)
  1. MORPHINE [Suspect]
     Active Substance: MORPHINE
     Indication: NEPHROLITHIASIS
     Dosage: SINGLE DOSE AT HOSPITAL
  2. ADDERALL 20MG [Concomitant]
  3. CITALOPRAM [Concomitant]
     Active Substance: CITALOPRAM HYDROBROMIDE
  4. CHAMOMILE TEA OCCASIONALLY. [Concomitant]
  5. VITAMIN D-500. [Concomitant]
  6. METROPROLOL 50MG [Concomitant]
  7. VITAMIN C [Concomitant]
     Active Substance: ASCORBIC ACID

REACTIONS (4)
  - Fatigue [None]
  - Confusional state [None]
  - Dizziness [None]
  - Eye movement disorder [None]

NARRATIVE: CASE EVENT DATE: 20150315
